FAERS Safety Report 12605475 (Version 1)
Quarter: 2016Q3

REPORT INFORMATION
  Report Type: Spontaneous
  Country: US (occurrence: US)
  Receive Date: 20160729
  Receipt Date: 20160729
  Transmission Date: 20161109
  Serious: Yes (Other)
  Sender: FDA-Public Use
  Company Number: US-GLENMARK PHARMACEUTICALS INC, USA.-2016GMK023766

PATIENT
  Age: 57 Year
  Sex: Female

DRUGS (5)
  1. LAMOTRIGINE. [Suspect]
     Active Substance: LAMOTRIGINE
     Indication: EPILEPSY
     Dosage: 600 MG, QD
     Route: 065
  2. LAMOTRIGINE. [Suspect]
     Active Substance: LAMOTRIGINE
     Dosage: 625 MG, QD
     Route: 065
  3. LAMOTRIGINE. [Suspect]
     Active Substance: LAMOTRIGINE
     Dosage: 400 MG, QD
     Route: 065
  4. ZONISAMIDE. [Concomitant]
     Active Substance: ZONISAMIDE
     Indication: EPILEPSY
     Dosage: UNK
     Route: 065
  5. LEVETIRACETAM. [Concomitant]
     Active Substance: LEVETIRACETAM
     Indication: EPILEPSY
     Dosage: UNK
     Route: 065

REACTIONS (5)
  - Aggression [Recovered/Resolved]
  - Atonic seizures [Recovered/Resolved]
  - Asthenia [Recovered/Resolved]
  - Toxicity to various agents [Recovered/Resolved]
  - Decreased appetite [Recovered/Resolved]
